FAERS Safety Report 16202505 (Version 2)
Quarter: 2019Q3

REPORT INFORMATION
  Report Type: Report from Study
  Country: None (occurrence: US)
  Receive Date: 20190416
  Receipt Date: 20190730
  Transmission Date: 20191004
  Serious: Yes (Other)
  Sender: FDA-Public Use
  Company Number: US-ABBVIE-19K-163-2738214-00

PATIENT
  Sex: Male

DRUGS (4)
  1. VENCLEXTA [Suspect]
     Active Substance: VENETOCLAX
     Indication: PLASMA CELL MYELOMA
     Route: 048
     Dates: start: 20190322, end: 2019
  2. ASPIRIN. [Concomitant]
     Active Substance: ASPIRIN
     Indication: PRODUCT USED FOR UNKNOWN INDICATION
  3. VENCLEXTA [Suspect]
     Active Substance: VENETOCLAX
     Route: 048
     Dates: start: 2019, end: 2019
  4. PLAVIX [Concomitant]
     Active Substance: CLOPIDOGREL BISULFATE
     Indication: PRODUCT USED FOR UNKNOWN INDICATION

REACTIONS (32)
  - Pain in extremity [Unknown]
  - Constipation [Unknown]
  - Protein total decreased [Unknown]
  - Plasma cell myeloma [Not Recovered/Not Resolved]
  - Thrombocytopenia [Unknown]
  - Neutrophil count increased [Unknown]
  - Lymphocyte count decreased [Unknown]
  - Blood sodium decreased [Unknown]
  - Blood urea increased [Unknown]
  - Blood albumin decreased [Unknown]
  - Urinary tract infection [Unknown]
  - Red blood cell count decreased [Unknown]
  - Osteonecrosis of jaw [Unknown]
  - Dysuria [Unknown]
  - Back pain [Unknown]
  - Musculoskeletal pain [Unknown]
  - Red cell distribution width increased [Unknown]
  - Soft tissue mass [Unknown]
  - Anaemia [Unknown]
  - Haemoglobin decreased [Unknown]
  - Pollakiuria [Unknown]
  - Blood creatinine decreased [Recovering/Resolving]
  - Abdominal pain lower [Unknown]
  - Benign prostatic hyperplasia [Unknown]
  - Secretion discharge [Unknown]
  - Oropharyngeal pain [Unknown]
  - Arthralgia [Unknown]
  - Lymphadenopathy [Unknown]
  - Platelet count decreased [Unknown]
  - Haematocrit decreased [Unknown]
  - Acute kidney injury [Unknown]
  - Micturition urgency [Unknown]

NARRATIVE: CASE EVENT DATE: 2019
